FAERS Safety Report 7814445-0 (Version None)
Quarter: 2011Q4

REPORT INFORMATION
  Report Type: 
  Country: None (occurrence: None)
  Receive Date: 20111012
  Receipt Date: 20110929
  Transmission Date: 20120403
  Serious: Yes (Hospitalization, Other)
  Sender: FDA-Public Use
  Company Number: 2011P1007376

PATIENT
  Age: 62 Year
  Sex: Female
  Weight: 74.3899 kg

DRUGS (20)
  1. NOROCAINE DRIP (NO PREF. NAME) [Suspect]
     Dosage: PARN
     Route: 051
  2. FENTANYL [Suspect]
     Indication: DEVICE LEAKAGE
     Dosage: Q3D;TDER
     Route: 062
     Dates: start: 20110511, end: 20110601
  3. FENTANYL [Suspect]
     Indication: BACK PAIN
     Dosage: Q3D;TDER
     Route: 062
     Dates: start: 20110511, end: 20110601
  4. FENTANYL [Suspect]
     Indication: FIBROMYALGIA
     Dosage: Q3D;TDER
     Route: 062
     Dates: start: 20110511, end: 20110601
  5. LOVAZA [Suspect]
     Indication: BLOOD CHOLESTEROL INCREASED
     Dosage: 2 TABLETS;QD
     Dates: start: 20110707, end: 20110712
  6. FENTANYL [Suspect]
     Indication: DEVICE LEAKAGE
     Dosage: Q3D;TDER
     Route: 062
     Dates: start: 20110511, end: 20110601
  7. FENTANYL [Suspect]
     Indication: BACK PAIN
     Dosage: Q3D;TDER
     Route: 062
     Dates: start: 20110511, end: 20110601
  8. FENTANYL [Suspect]
     Indication: FIBROMYALGIA
     Dosage: Q3D;TDER
     Route: 062
     Dates: start: 20110511, end: 20110601
  9. FENTANYL [Suspect]
     Indication: FIBROMYALGIA
     Dosage: PARN; 36,000 MCG;PARN
     Route: 051
     Dates: end: 20110519
  10. FENTANYL [Suspect]
     Indication: BACK PAIN
     Dosage: PARN; 36,000 MCG;PARN
     Route: 051
     Dates: end: 20110519
  11. FENTANYL [Suspect]
     Indication: DEVICE LEAKAGE
     Dosage: PARN; 36,000 MCG;PARN
     Route: 051
     Dates: end: 20110519
  12. FENTANYL [Suspect]
     Indication: FIBROMYALGIA
     Dosage: PARN; 36,000 MCG;PARN
     Route: 051
     Dates: start: 20110519, end: 20110519
  13. FENTANYL [Suspect]
     Indication: BACK PAIN
     Dosage: PARN; 36,000 MCG;PARN
     Route: 051
     Dates: start: 20110519, end: 20110519
  14. FENTANYL [Suspect]
     Indication: DEVICE LEAKAGE
     Dosage: PARN; 36,000 MCG;PARN
     Route: 051
     Dates: start: 20110519, end: 20110519
  15. FENTANYL [Suspect]
     Indication: FIBROMYALGIA
     Dosage: PARN; 36,000 MCG;PARN
     Route: 051
     Dates: start: 20110601
  16. FENTANYL [Suspect]
     Indication: BACK PAIN
     Dosage: PARN; 36,000 MCG;PARN
     Route: 051
     Dates: start: 20110601
  17. FENTANYL [Suspect]
     Indication: DEVICE LEAKAGE
     Dosage: PARN; 36,000 MCG;PARN
     Route: 051
     Dates: start: 20110601
  18. PREMARIN [Concomitant]
  19. SYNTHROID [Concomitant]
  20. UNSPECIFIED HIGH BLOOD PRESSURE MEDICATION [Concomitant]

REACTIONS (7)
  - MUSCULOSKELETAL STIFFNESS [None]
  - ACCIDENTAL OVERDOSE [None]
  - RENAL DISORDER [None]
  - SYNCOPE [None]
  - RENAL FAILURE ACUTE [None]
  - WEIGHT INCREASED [None]
  - ALOPECIA [None]
